FAERS Safety Report 7927883-2 (Version None)
Quarter: 2011Q4

REPORT INFORMATION
  Report Type: 
  Country: None (occurrence: None)
  Receive Date: 20111118
  Receipt Date: 20111115
  Transmission Date: 20120403
  Serious: Yes (Death, Other)
  Sender: FDA-Public Use
  Company Number: US-PFIZER INC-2011280755

PATIENT

DRUGS (1)
  1. CARBOPLATIN [Suspect]
     Indication: ACUTE LEUKAEMIA
     Dosage: UNK

REACTIONS (2)
  - HEPATIC ENCEPHALOPATHY [None]
  - ACUTE HEPATIC FAILURE [None]
